FAERS Safety Report 6896971-4 (Version None)
Quarter: 2010Q3

REPORT INFORMATION
  Report Type: 
  Country: None (occurrence: None)
  Receive Date: 20100802
  Receipt Date: 20070510
  Transmission Date: 20110219
  Serious: No
  Sender: FDA-Public Use
  Company Number: US-PFIZER INC-2006125600

PATIENT
  Sex: Female
  Weight: 80.74 kg

DRUGS (12)
  1. LYRICA [Suspect]
     Indication: HERPES ZOSTER
     Route: 048
     Dates: start: 20060301
  2. LYRICA [Suspect]
     Indication: NEURALGIA
  3. NAMENDA [Concomitant]
     Indication: DEMENTIA ALZHEIMER'S TYPE
  4. FLUOXETINE [Concomitant]
     Indication: DEPRESSION
  5. ALTACE [Concomitant]
  6. ARICEPT [Concomitant]
     Indication: DEMENTIA ALZHEIMER'S TYPE
  7. ZOCOR [Concomitant]
  8. ACETYLSALICYLIC ACID SRT [Concomitant]
  9. TRAMADOL HYDROCHLORIDE [Concomitant]
  10. VITAMIN B-12 [Concomitant]
  11. XALATAN [Concomitant]
     Indication: GLAUCOMA
  12. PROZAC [Concomitant]

REACTIONS (3)
  - AGITATION [None]
  - DRUG INEFFECTIVE [None]
  - WEIGHT INCREASED [None]
